FAERS Safety Report 25968361 (Version 2)
Quarter: 2025Q4

REPORT INFORMATION
  Report Type: Spontaneous
  Country: EU (occurrence: EU)
  Receive Date: 20251028
  Receipt Date: 20251114
  Transmission Date: 20260118
  Serious: Yes (Other)
  Sender: RANBAXY
  Company Number: EU-SUN PHARMACEUTICAL INDUSTRIES LTD-2025R1-533551

PATIENT
  Age: 71 Year
  Sex: Female

DRUGS (2)
  1. BUPIVACAINE [Suspect]
     Active Substance: BUPIVACAINE
     Indication: Anaesthesia
     Dosage: 6 MILLIGRAM, QD
     Route: 037
  2. MORPHINE [Suspect]
     Active Substance: MORPHINE
     Indication: Anaesthesia
     Dosage: 1 MILLIGRAM, QD
     Route: 037

REACTIONS (1)
  - Disease progression [Unknown]
